FAERS Safety Report 24353045 (Version 1)
Quarter: 2024Q3

REPORT INFORMATION
  Report Type: Report from Study
  Country: IN (occurrence: IN)
  Receive Date: 20240923
  Receipt Date: 20240923
  Transmission Date: 20241017
  Serious: No
  Sender: ROCHE
  Company Number: IN-ROCHE-3468837

PATIENT
  Age: 58 Year
  Sex: Female

DRUGS (1)
  1. TRASTUZUMAB [Suspect]
     Active Substance: TRASTUZUMAB
     Indication: Endometrial cancer metastatic
     Dosage: FREQUENCY TEXT:FREQUENCY 21
     Route: 041
     Dates: start: 20230916

REACTIONS (1)
  - Mouth ulceration [Unknown]
